FAERS Safety Report 9218754 (Version 1)
Quarter: 2013Q2

REPORT INFORMATION
  Report Type: Spontaneous
  Country: US (occurrence: None)
  Receive Date: 20130405
  Receipt Date: 20130405
  Transmission Date: 20140414
  Serious: Yes (Other)
  Sender: FDA-Public Use
  Company Number: None

PATIENT
  Age: 32 Year
  Sex: Female
  Weight: 80.29 kg

DRUGS (4)
  1. RELISTOR [Suspect]
     Indication: CONSTIPATION
     Dosage: 12MG QOD PRN SQ
     Route: 058
     Dates: start: 20130401, end: 20130401
  2. OXYCODONE [Concomitant]
  3. SOMA [Concomitant]
  4. PROTONIX [Concomitant]

REACTIONS (2)
  - Abdominal pain [None]
  - Loss of consciousness [None]
